FAERS Safety Report 6969592-2 (Version None)
Quarter: 2010Q3

REPORT INFORMATION
  Report Type: 
  Country: None (occurrence: None)
  Receive Date: 20100902
  Receipt Date: 20100825
  Transmission Date: 20110219
  Serious: Yes (Other)
  Sender: FDA-Public Use
  Company Number: 2010SP046124

PATIENT
  Age: 34 Year
  Sex: Female

DRUGS (3)
  1. IMPLANON [Suspect]
     Indication: CONTRACEPTION
     Dosage: 1 DF
     Dates: start: 20100701
  2. LEXAPRO [Concomitant]
  3. ABILIFY [Concomitant]

REACTIONS (3)
  - BRADYCARDIA [None]
  - CHEST DISCOMFORT [None]
  - FEAR [None]
